FAERS Safety Report 8486800 (Version 4)
Quarter: 2013Q4

REPORT INFORMATION
  Report Type: Spontaneous
  Country: US (occurrence: US)
  Receive Date: 20120402
  Receipt Date: 20131218
  Transmission Date: 20140711
  Serious: Yes (Death, Life-Threatening, Other)
  Sender: FDA-Public Use
  Company Number: US-JNJFOC-20120313118

PATIENT
  Sex: 0

DRUGS (5)
  1. DOXORUBICIN [Suspect]
     Indication: HODGKIN^S DISEASE
     Dosage: DAY 1 AND 15 OF 28 DAY CYCLE
     Route: 042
  2. BRENTUXIMAB VEDOTIN [Suspect]
     Indication: HODGKIN^S DISEASE
     Dosage: 0.6, 0.9 OR 1.2 MG/KG WITH ABVD REGIMEN??1.2 MG/KG WITH AVD REGIMEN DAY 1 AND 15 OF 28 DAY CYCLE
     Route: 065
  3. VINBLASTINE [Suspect]
     Indication: HODGKIN^S DISEASE
     Dosage: DAYS 1 AND 15 OF EACH 28 DAY CYCLE FOR UPTO 6 CYCLES OF THERAPY
     Route: 065
  4. DACARBAZINE [Suspect]
     Indication: HODGKIN^S DISEASE
     Dosage: DAYS 1 AND 15 OF EACH 28 DAY CYCLE
     Route: 065
  5. BLEOMYCIN [Suspect]
     Indication: HODGKIN^S DISEASE
     Dosage: 10 UNITS/ M2; DAYS 1 AND 15 OF EACH 28 DAY CYCLE
     Route: 065

REACTIONS (39)
  - Pulmonary toxicity [Fatal]
  - Interstitial lung disease [Fatal]
  - Pneumonitis [Fatal]
  - Cerebral haemorrhage [Unknown]
  - Peripheral motor neuropathy [Unknown]
  - Brain death [Unknown]
  - Syncope [Unknown]
  - Decreased appetite [Unknown]
  - Dyspnoea [Unknown]
  - Anaemia [Unknown]
  - Neutropenia [Unknown]
  - Febrile neutropenia [Unknown]
  - Peripheral sensory neuropathy [Unknown]
  - Neutropenia [Unknown]
  - Fatigue [Unknown]
  - Cough [Unknown]
  - Rash [Unknown]
  - Abdominal pain [Unknown]
  - Hyperuricaemia [Unknown]
  - Anxiety [Unknown]
  - Dyspepsia [Unknown]
  - Weight decreased [Unknown]
  - Headache [Unknown]
  - Alopecia [Unknown]
  - Insomnia [Unknown]
  - Diarrhoea [Unknown]
  - Chills [Unknown]
  - Constipation [Unknown]
  - Vomiting [Unknown]
  - Nausea [Unknown]
  - Infusion related reaction [Unknown]
  - Bone pain [Unknown]
  - Rhinorrhoea [Unknown]
  - Myalgia [Unknown]
  - Arthralgia [Unknown]
  - Pain in extremity [Unknown]
  - Stomatitis [Unknown]
  - Back pain [Unknown]
  - Mucosal inflammation [Unknown]
